FAERS Safety Report 8887113 (Version 2)
Quarter: 2013Q1

REPORT INFORMATION
  Report Type: Spontaneous
  Country: GB (occurrence: GB)
  Receive Date: 20121105
  Receipt Date: 20130214
  Transmission Date: 20140127
  Serious: Yes (Other)
  Sender: FDA-Public Use
  Company Number: CHNY2012GB000611

PATIENT
  Age: 47 Year
  Sex: Female
  Weight: 50.8 kg

DRUGS (5)
  1. VOLTAROL [Suspect]
     Indication: ANALGESIC THERAPY
     Dosage: 1 DF, UNK
     Route: 048
     Dates: start: 20121014, end: 20121016
  2. THYROXINE [Concomitant]
  3. PARACETAMOL [Concomitant]
  4. IBUPROFEN [Concomitant]
  5. CODEINE [Concomitant]

REACTIONS (1)
  - Petit mal epilepsy [Recovered/Resolved]
